FAERS Safety Report 5466701-1 (Version None)
Quarter: 2007Q3

REPORT INFORMATION
  Report Type: 
  Country: None (occurrence: None)
  Receive Date: 20070925
  Receipt Date: 20070914
  Transmission Date: 20080115
  Serious: Yes (Hospitalization)
  Sender: FDA-Public Use
  Company Number: HQWYE203418SEP07

PATIENT
  Age: 43 Year
  Sex: Female
  Weight: 77.18 kg

DRUGS (2)
  1. PREMARIN [Suspect]
     Indication: CYSTOURETHROPEXY
     Dosage: ONE APPLICATION 0.625MG/G
     Route: 067
     Dates: start: 20070827, end: 20070827
  2. SYNTHROID [Concomitant]

REACTIONS (2)
  - HYPOAESTHESIA [None]
  - PAIN [None]
